FAERS Safety Report 8325492-7 (Version None)
Quarter: 2012Q2

REPORT INFORMATION
  Report Type: 
  Country: None (occurrence: None)
  Receive Date: 20120501
  Receipt Date: 20100427
  Transmission Date: 20120825
  Serious: No
  Sender: FDA-Public Use
  Company Number: US-TEVA-2010002448

PATIENT
  Sex: Female
  Weight: 99.88 kg

DRUGS (5)
  1. SEASONIQUE [Concomitant]
  2. NUVIGIL [Suspect]
     Dosage: 250 MILLIGRAM;
     Route: 048
     Dates: start: 20100424, end: 20100425
  3. NUVIGIL [Suspect]
     Indication: HYPERSOMNIA
     Dosage: 150 MILLIGRAM;
     Route: 048
     Dates: start: 20100411
  4. WELLBUTRIN [Concomitant]
     Indication: DEPRESSION
     Dosage: 300 MILLIGRAM;
     Route: 048
     Dates: start: 20100301
  5. ALBUTEROL [Concomitant]
     Indication: ASTHMA
     Route: 055
     Dates: start: 19980101

REACTIONS (6)
  - NIGHT SWEATS [None]
  - NAUSEA [None]
  - ABNORMAL BEHAVIOUR [None]
  - FEELING HOT [None]
  - FEELING COLD [None]
  - DRUG INEFFECTIVE FOR UNAPPROVED INDICATION [None]
